FAERS Safety Report 18508713 (Version 1)
Quarter: 2020Q4

REPORT INFORMATION
  Report Type: Spontaneous
  Country: US (occurrence: US)
  Receive Date: 20201117
  Receipt Date: 20201117
  Transmission Date: 20210114
  Serious: No
  Sender: FDA-Public Use
  Company Number: US-SA-2020SA316119

PATIENT

DRUGS (12)
  1. EUCRISA [Concomitant]
     Active Substance: CRISABOROLE
  2. ESOMEPRAZOLE MAGNESIUM. [Concomitant]
     Active Substance: ESOMEPRAZOLE MAGNESIUM
  3. TIZANIDINE HCL [Concomitant]
     Active Substance: TIZANIDINE HYDROCHLORIDE
  4. CYCLOSPORINE. [Concomitant]
     Active Substance: CYCLOSPORINE
  5. CELEBREX [Concomitant]
     Active Substance: CELECOXIB
  6. NORVASC [Concomitant]
     Active Substance: AMLODIPINE BESYLATE
  7. PROVENTIL HFA [SALBUTAMOL] [Concomitant]
  8. DUPIXENT [Suspect]
     Active Substance: DUPILUMAB
     Indication: DERMATITIS ATOPIC
     Dosage: 300 MG, QOW
     Route: 058
     Dates: start: 20201014
  9. ZYRTEC [Concomitant]
     Active Substance: CETIRIZINE HYDROCHLORIDE
  10. CLOBETASOL [Concomitant]
     Active Substance: CLOBETASOL
  11. HYDROXYZINE HCL [Concomitant]
     Active Substance: HYDROXYZINE HYDROCHLORIDE
  12. DIOVAN [Concomitant]
     Active Substance: VALSARTAN

REACTIONS (8)
  - Pruritus [Unknown]
  - Skin fissures [Unknown]
  - Sleep disorder [Unknown]
  - Skin exfoliation [Unknown]
  - Peripheral swelling [Unknown]
  - Eczema [Unknown]
  - Dry skin [Unknown]
  - Rash [Unknown]

NARRATIVE: CASE EVENT DATE: 202010
